FAERS Safety Report 22340434 (Version 1)
Quarter: 2023Q2

REPORT INFORMATION
  Report Type: Report from Study
  Country: US (occurrence: US)
  Receive Date: 20230518
  Receipt Date: 20230518
  Transmission Date: 20230721
  Serious: Yes (Other)
  Sender: FDA-Public Use
  Company Number: US-JAZZ-2023-US-002707

PATIENT
  Age: 33 Year
  Sex: Male

DRUGS (21)
  1. XYREM [Suspect]
     Active Substance: SODIUM OXYBATE
     Indication: Narcolepsy
     Dosage: 3.75 GRAM 1ST DOSE AND 3.5 GRAM 2ND DOSE
  2. XYREM [Suspect]
     Active Substance: SODIUM OXYBATE
     Indication: Cataplexy
  3. XYREM [Suspect]
     Active Substance: SODIUM OXYBATE
     Indication: Somnolence
  4. EPIPEN [Concomitant]
     Active Substance: EPINEPHRINE
     Indication: Product used for unknown indication
     Dosage: 0000
     Dates: start: 20151201
  5. TESTOSTERONE [Concomitant]
     Active Substance: TESTOSTERONE
     Indication: Product used for unknown indication
     Dosage: CYP 200 MG/ML
     Dates: start: 20151201
  6. SUDAFED 12 HOUR [Concomitant]
     Active Substance: PSEUDOEPHEDRINE HYDROCHLORIDE
     Indication: Product used for unknown indication
     Dosage: UNK
     Dates: start: 20160119
  7. IBUPROFEN [Concomitant]
     Active Substance: IBUPROFEN
     Indication: Product used for unknown indication
     Dosage: 200 MG CAPLET
     Dates: start: 20160119
  8. XOPENEX HFA [Concomitant]
     Active Substance: LEVALBUTEROL TARTRATE
     Indication: Product used for unknown indication
     Dosage: 0000
     Dates: start: 20211005
  9. CROMOLYN [Concomitant]
     Active Substance: CROMOLYN
     Indication: Product used for unknown indication
     Dosage: 100 MG/5 ML ORAL CONC
     Dates: start: 20220701
  10. COQ10 RX [Concomitant]
     Dosage: 100 MILLIGRAM
  11. CROMOLYN SODIUM [Concomitant]
     Active Substance: CROMOLYN SODIUM
     Dosage: 20 UNK
  12. VITA D3 [Concomitant]
  13. FINASTERIDE [Concomitant]
     Active Substance: FINASTERIDE
     Dosage: 1 MILLIGRAM
  14. FISH OIL [Concomitant]
     Active Substance: FISH OIL
  15. FLONASE ALLERGY RELIEF [Concomitant]
     Active Substance: FLUTICASONE PROPIONATE
  16. HOMOCYSTEINE FORMULA [Concomitant]
  17. ICARIDIN [Concomitant]
     Active Substance: ICARIDIN
     Dosage: 10 MILLIGRAM
  18. LUPRON [Concomitant]
     Active Substance: LEUPROLIDE ACETATE
  19. PEPCID AC [Concomitant]
     Active Substance: FAMOTIDINE
  20. ASCORBIC ACID [Concomitant]
     Active Substance: ASCORBIC ACID
  21. ZADITOR [Concomitant]
     Active Substance: KETOTIFEN FUMARATE

REACTIONS (4)
  - Mast cell activation syndrome [Unknown]
  - Hypersensitivity [Unknown]
  - Pre-existing condition improved [Unknown]
  - Product administration interrupted [Unknown]

NARRATIVE: CASE EVENT DATE: 20220701
